FAERS Safety Report 18156105 (Version 1)
Quarter: 2020Q3

REPORT INFORMATION
  Report Type: Spontaneous
  Country: US (occurrence: US)
  Receive Date: 20200814
  Receipt Date: 20200814
  Transmission Date: 20201103
  Serious: No
  Sender: FDA-Public Use
  Company Number: None

PATIENT
  Age: 78 Year
  Sex: Female
  Weight: 67.5 kg

DRUGS (15)
  1. CENTRUM SILVER [Concomitant]
     Active Substance: MINERALS\VITAMINS
  2. SIMVASTATIN. [Concomitant]
     Active Substance: SIMVASTATIN
  3. FLUOXETINE HCL [Concomitant]
     Active Substance: FLUOXETINE HYDROCHLORIDE
  4. LOSARTAN POTASSIUM. [Concomitant]
     Active Substance: LOSARTAN POTASSIUM
  5. PROLIA [Concomitant]
     Active Substance: DENOSUMAB
  6. TYLENOL EXTRA STRENGTH [Concomitant]
     Active Substance: ACETAMINOPHEN
  7. FUROSEMIDE. [Concomitant]
     Active Substance: FUROSEMIDE
  8. JAKAFI [Suspect]
     Active Substance: RUXOLITINIB
     Route: 048
  9. PANTOPRAZOLE SODIUM. [Concomitant]
     Active Substance: PANTOPRAZOLE SODIUM
  10. CALCIUM 600 [Concomitant]
     Active Substance: CALCIUM
  11. HYDROCHLOROTHIAZIDE. [Concomitant]
     Active Substance: HYDROCHLOROTHIAZIDE
  12. IRON [Concomitant]
     Active Substance: IRON
  13. TOLTERODINE TARTRATE. [Concomitant]
     Active Substance: TOLTERODINE TARTRATE
  14. VITAMIN D3 [Concomitant]
     Active Substance: CHOLECALCIFEROL
  15. GLUCOSAMINE [Concomitant]
     Active Substance: GLUCOSAMINE

REACTIONS (1)
  - Pain in extremity [None]
